FAERS Safety Report 18216942 (Version 1)
Quarter: 2020Q3

REPORT INFORMATION
  Report Type: Spontaneous
  Country: US (occurrence: US)
  Receive Date: 20200831
  Receipt Date: 20200831
  Transmission Date: 20201103
  Serious: Yes (Death)
  Sender: FDA-Public Use
  Company Number: None

PATIENT

DRUGS (5)
  1. CLONIDINE 0.1MG [Suspect]
     Active Substance: CLONIDINE
     Dosage: ?          OTHER FREQUENCY:MORNING + NIGHT;?
  2. PROTONIX [Suspect]
     Active Substance: PANTOPRAZOLE SODIUM
  3. AMITRIPTYLIN 50?100MG [Suspect]
     Active Substance: AMITRIPTYLINE
     Dosage: ?          OTHER FREQUENCY:NIGHT AS NEEDED;?
  4. METFORMIN 500MG [Suspect]
     Active Substance: METFORMIN HYDROCHLORIDE
     Dosage: ?          OTHER FREQUENCY:MORNING + NIGHT;?
  5. LEXAPRO [Suspect]
     Active Substance: ESCITALOPRAM OXALATE
     Dosage: ?          OTHER FREQUENCY:MORNING;?

REACTIONS (4)
  - Hypersomnia [None]
  - Disorientation [None]
  - Completed suicide [None]
  - Feeling abnormal [None]
